FAERS Safety Report 6475366-1 (Version None)
Quarter: 2009Q4

REPORT INFORMATION
  Report Type: 
  Country: None (occurrence: None)
  Receive Date: 20091204
  Receipt Date: 20091027
  Transmission Date: 20100525
  Serious: Yes (Death)
  Sender: FDA-Public Use
  Company Number: RO-ROCHE-571801

PATIENT
  Sex: Female
  Weight: 70 kg

DRUGS (5)
  1. XELODA [Suspect]
     Indication: RECTAL CANCER METASTATIC
     Route: 048
     Dates: start: 20080104, end: 20080430
  2. AVASTIN [Suspect]
     Indication: RECTAL CANCER METASTATIC
     Route: 042
     Dates: start: 20071213, end: 20090430
  3. FLUOROURACIL [Concomitant]
     Indication: RECTAL CANCER METASTATIC
  4. IRINOTECAN HCL [Concomitant]
     Indication: RECTAL CANCER METASTATIC
  5. OXALIPLATIN [Concomitant]
     Indication: RECTAL CANCER METASTATIC

REACTIONS (1)
  - COLONIC OBSTRUCTION [None]
